APPROVED DRUG PRODUCT: NATEGLINIDE
Active Ingredient: NATEGLINIDE
Strength: 60MG
Dosage Form/Route: TABLET;ORAL
Application: A205248 | Product #001 | TE Code: AB
Applicant: ZYDUS PHARMACEUTICALS USA INC
Approved: Jul 6, 2016 | RLD: No | RS: No | Type: RX